FAERS Safety Report 5049284-X (Version None)
Quarter: 2006Q2

REPORT INFORMATION
  Report Type: 
  Country: None (occurrence: None)
  Receive Date: 20060613
  Receipt Date: 20060410
  Transmission Date: 20061013
  Serious: No
  Sender: FDA-Public Use
  Company Number: 2006-00822

PATIENT
  Age: 67 Year
  Sex: Female
  Weight: 59 kg

DRUGS (1)
  1. VELCADE [Suspect]
     Indication: NON-HODGKIN'S LYMPHOMA
     Dates: start: 20060101

REACTIONS (3)
  - FEELING ABNORMAL [None]
  - HERPES ZOSTER [None]
  - RASH PRURITIC [None]
